FAERS Safety Report 5502419-4 (Version None)
Quarter: 2007Q4

REPORT INFORMATION
  Report Type: 
  Country: None (occurrence: None)
  Receive Date: 20071030
  Receipt Date: 20071018
  Transmission Date: 20080405
  Serious: Yes (Hospitalization, Other)
  Sender: FDA-Public Use
  Company Number: FR-PFIZER INC-2007068226

PATIENT
  Sex: Male
  Weight: 72 kg

DRUGS (4)
  1. ZARONTIN [Suspect]
     Indication: EPILEPSY
     Route: 048
  2. DEPAKENE [Suspect]
     Indication: EPILEPSY
     Dosage: DAILY DOSE:2000MG
     Route: 048
  3. COMBIVIR [Concomitant]
     Indication: HIV INFECTION
     Route: 048
  4. VIRAMUNE [Concomitant]
     Indication: HIV INFECTION
     Route: 048

REACTIONS (1)
  - PRIAPISM [None]
